FAERS Safety Report 7720768-6 (Version None)
Quarter: 2011Q3

REPORT INFORMATION
  Report Type: 
  Country: None (occurrence: None)
  Receive Date: 20110831
  Receipt Date: 20110823
  Transmission Date: 20111222
  Serious: Yes (Hospitalization, Other)
  Sender: FDA-Public Use
  Company Number: US-ASTELLAS-2011US004144

PATIENT
  Sex: Male
  Weight: 13 kg

DRUGS (3)
  1. TACROLIMUS [Suspect]
     Indication: DERMATITIS ATOPIC
     Dosage: 0.03 %, UID/QD
     Route: 061
     Dates: start: 20090805
  2. ALBUTEROL SULFATE AUTOHALER [Concomitant]
     Indication: ASTHMA
     Dosage: UNK
     Route: 055
     Dates: start: 20110122
  3. CUTIVATE [Concomitant]
     Indication: ATOPY
     Dosage: UNK
     Route: 065
     Dates: start: 20100805

REACTIONS (2)
  - ASTHMA [None]
  - BRONCHIAL HYPERREACTIVITY [None]
